FAERS Safety Report 17184414 (Version 2)
Quarter: 2020Q1

REPORT INFORMATION
  Report Type: Spontaneous
  Country: US (occurrence: US)
  Receive Date: 20191220
  Receipt Date: 20200110
  Transmission Date: 20200409
  Serious: Yes (Hospitalization, Other)
  Sender: FDA-Public Use
  Company Number: US-PFIZER INC-2019546108

PATIENT
  Age: 62 Year
  Sex: Male
  Weight: 108.8 kg

DRUGS (2)
  1. VFEND [Suspect]
     Active Substance: VORICONAZOLE
     Indication: ANTIFUNGAL TREATMENT
     Dosage: 300 MG, 2X/DAY (EVERY 12 HOURS)
     Dates: start: 201910
  2. VFEND [Suspect]
     Active Substance: VORICONAZOLE
     Indication: INFECTION

REACTIONS (3)
  - Cardiac failure congestive [Recovering/Resolving]
  - Hypotension [Recovering/Resolving]
  - Pleural effusion [Unknown]

NARRATIVE: CASE EVENT DATE: 201912
